FAERS Safety Report 4364931-3 (Version None)
Quarter: 2004Q2

REPORT INFORMATION
  Report Type: 
  Country: None (occurrence: None)
  Receive Date: 20040521
  Receipt Date: 20040503
  Transmission Date: 20050107
  Serious: Yes (Other)
  Sender: FDA-Public Use
  Company Number: A03200400167

PATIENT
  Age: 54 Year
  Sex: Female
  Weight: 67.586 kg

DRUGS (1)
  1. PLAVIX [Suspect]
     Indication: CORONARY ARTERIAL STENT INSERTION
     Dosage: 75 MG QD ORAL
     Route: 048
     Dates: start: 20000701, end: 20040101

REACTIONS (6)
  - ASTHENOPIA [None]
  - DRUG INEFFECTIVE [None]
  - EYE PAIN [None]
  - MACULAR DEGENERATION [None]
  - PHOTOPSIA [None]
  - VISION BLURRED [None]
